FAERS Safety Report 11515212 (Version 3)
Quarter: 2015Q4

REPORT INFORMATION
  Report Type: Report from Study
  Country: US (occurrence: US)
  Receive Date: 20150916
  Receipt Date: 20151120
  Transmission Date: 20160304
  Serious: Yes (Hospitalization, Other)
  Sender: FDA-Public Use
  Company Number: US-BRISTOL-MYERS SQUIBB COMPANY-BMS-2015-060119

PATIENT
  Age: 62 Year
  Sex: Female

DRUGS (1)
  1. BELATACEPT [Suspect]
     Active Substance: BELATACEPT
     Indication: TRANSPLANT REJECTION
     Route: 065

REACTIONS (21)
  - Pulmonary oedema [Unknown]
  - Pericardial effusion [Unknown]
  - Mitral valve disease [Unknown]
  - Malnutrition [Unknown]
  - Cardiac failure [Unknown]
  - Anaemia [Unknown]
  - Hyperparathyroidism secondary [Unknown]
  - Oral candidiasis [Unknown]
  - Catheterisation cardiac [Unknown]
  - Mitral valve incompetence [Unknown]
  - Cardiomyopathy [Unknown]
  - Weight decreased [Unknown]
  - Hypokalaemia [Unknown]
  - Hypertension [Unknown]
  - Cardiac ventricular thrombosis [Unknown]
  - Coxsackie viral infection [Unknown]
  - Clostridium difficile infection [Unknown]
  - Pulmonary embolism [Unknown]
  - Malaise [Unknown]
  - Asthenia [Unknown]
  - Pulmonary valve incompetence [Unknown]

NARRATIVE: CASE EVENT DATE: 20150910
